FAERS Safety Report 9617012 (Version 3)
Quarter: 2013Q4

REPORT INFORMATION
  Report Type: Spontaneous
  Country: US (occurrence: US)
  Receive Date: 20131011
  Receipt Date: 20131220
  Transmission Date: 20140711
  Serious: Yes (Hospitalization, Other)
  Sender: FDA-Public Use
  Company Number: US-AMGEN-USASP2013070297

PATIENT
  Age: 64 Year
  Sex: Female

DRUGS (2)
  1. SENSIPAR [Suspect]
     Indication: BLOOD PARATHYROID HORMONE INCREASED
     Dosage: 30 MG, QD
     Route: 048
  2. SENSIPAR [Suspect]
     Indication: HYPERPARATHYROIDISM SECONDARY

REACTIONS (2)
  - Grand mal convulsion [Unknown]
  - Blood calcium decreased [Unknown]
